FAERS Safety Report 7766625-0 (Version None)
Quarter: 2011Q3

REPORT INFORMATION
  Report Type: 
  Country: None (occurrence: None)
  Receive Date: 20110916
  Receipt Date: 20110902
  Transmission Date: 20111222
  Serious: Yes (Death, Hospitalization, Other)
  Sender: FDA-Public Use
  Company Number: 2011P1008710

PATIENT
  Age: 40 Year
  Sex: Male

DRUGS (4)
  1. FENTANYL [Suspect]
     Indication: RHEUMATOID ARTHRITIS
     Dosage: 50 MCG/HR;X1;TDER
     Route: 062
     Dates: start: 20101002, end: 20101003
  2. NAPROXEN [Concomitant]
  3. DARVOCET [Suspect]
     Indication: RHEUMATOID ARTHRITIS
     Dates: start: 20100926, end: 20101003
  4. FENTANYL [Suspect]
     Indication: RHEUMATOID ARTHRITIS
     Dosage: 1 PATCH;PRN;TDER
     Route: 062
     Dates: start: 20100501

REACTIONS (14)
  - VOMITING [None]
  - LOSS OF CONSCIOUSNESS [None]
  - ASTHENIA [None]
  - PULSE ABSENT [None]
  - PRODUCT QUALITY ISSUE [None]
  - ABDOMINAL PAIN UPPER [None]
  - FEELING ABNORMAL [None]
  - FEELING HOT [None]
  - MALAISE [None]
  - DYSPEPSIA [None]
  - SELF-MEDICATION [None]
  - TOXICITY TO VARIOUS AGENTS [None]
  - HEAT EXHAUSTION [None]
  - INCORRECT DOSE ADMINISTERED [None]
